FAERS Safety Report 6135527-8 (Version None)
Quarter: 2009Q1

REPORT INFORMATION
  Report Type: 
  Country: None (occurrence: None)
  Receive Date: 20090327
  Receipt Date: 20090319
  Transmission Date: 20090719
  Serious: Yes (Other)
  Sender: FDA-Public Use
  Company Number: B0566458A

PATIENT
  Sex: Male

DRUGS (66)
  1. AZICLAV [Suspect]
     Indication: DRUG USE FOR UNKNOWN INDICATION
     Route: 048
  2. SERETIDE [Suspect]
     Indication: DRUG USE FOR UNKNOWN INDICATION
     Route: 055
  3. LESCOL [Suspect]
     Indication: DRUG USE FOR UNKNOWN INDICATION
     Route: 065
  4. FLUVASTATIN [Suspect]
     Indication: DRUG USE FOR UNKNOWN INDICATION
     Route: 065
  5. ZOCOR [Suspect]
     Indication: DRUG USE FOR UNKNOWN INDICATION
     Route: 065
  6. SIMVASTATIN [Suspect]
     Indication: DRUG USE FOR UNKNOWN INDICATION
     Route: 065
  7. FENOFIBRATE [Suspect]
     Indication: DRUG USE FOR UNKNOWN INDICATION
     Route: 065
  8. CRESTOR [Suspect]
     Indication: DRUG USE FOR UNKNOWN INDICATION
     Route: 065
  9. CADUET [Suspect]
     Indication: DRUG USE FOR UNKNOWN INDICATION
     Route: 065
  10. NIASPAN [Suspect]
     Indication: DRUG USE FOR UNKNOWN INDICATION
     Route: 065
  11. PRAVASTATIN [Suspect]
     Indication: DRUG USE FOR UNKNOWN INDICATION
     Route: 065
  12. ARTICHOKE [Suspect]
     Indication: DRUG USE FOR UNKNOWN INDICATION
     Route: 065
  13. PLAVIX [Suspect]
     Indication: DRUG USE FOR UNKNOWN INDICATION
     Route: 065
  14. SINGULAIR [Suspect]
     Indication: DRUG USE FOR UNKNOWN INDICATION
     Route: 065
  15. SPIRIVA [Suspect]
     Indication: DRUG USE FOR UNKNOWN INDICATION
     Route: 065
  16. XATRAL [Suspect]
     Indication: DRUG USE FOR UNKNOWN INDICATION
     Route: 065
  17. COTRIM [Suspect]
     Indication: DRUG USE FOR UNKNOWN INDICATION
     Route: 065
  18. AMOXICILLIN [Suspect]
     Indication: DRUG USE FOR UNKNOWN INDICATION
     Route: 065
  19. INDAPAMIDE [Suspect]
     Indication: DRUG USE FOR UNKNOWN INDICATION
     Route: 065
  20. UNIFYL [Suspect]
     Indication: DRUG USE FOR UNKNOWN INDICATION
     Route: 065
  21. TORASEMIDE [Suspect]
     Indication: DRUG USE FOR UNKNOWN INDICATION
     Route: 065
  22. COMPRESSION STOCKINGS [Suspect]
     Indication: DRUG USE FOR UNKNOWN INDICATION
     Route: 065
  23. CIPROFLOXACIN [Suspect]
     Indication: DRUG USE FOR UNKNOWN INDICATION
     Route: 065
  24. SORTIS [Suspect]
     Indication: DRUG USE FOR UNKNOWN INDICATION
     Route: 065
  25. MOTILIUM [Concomitant]
  26. LUDIOMIL [Concomitant]
  27. RANITIDINE [Concomitant]
  28. LEXOTANIL [Concomitant]
  29. SERESTA [Concomitant]
  30. VOLTAREN [Concomitant]
  31. CHLORZOXAZONE [Concomitant]
  32. COMFREY [Concomitant]
  33. PARACETAMOL [Concomitant]
  34. ACETYLCYSTEINE [Concomitant]
  35. RESYL [Concomitant]
  36. DOXYCYCLINE HCL [Concomitant]
  37. IMACORT [Concomitant]
  38. PANOTILE [Concomitant]
  39. ZITHROMAX [Concomitant]
  40. BEPANTHEN [Concomitant]
  41. ECOVENT [Concomitant]
  42. ATROVENT [Concomitant]
  43. PULMICORT-100 [Concomitant]
  44. SYMBICORT [Concomitant]
  45. FOSITEN [Concomitant]
  46. FOSINOPRIL SODIUM AND HYDROCHLOROTHIAZIDE [Concomitant]
  47. BELOC ZOK [Concomitant]
  48. METOPROLOL [Concomitant]
  49. NITROGLYCERIN [Concomitant]
  50. ANXIOLIT [Concomitant]
  51. AMILORIDE HCL AND HYDROCHLOROTHIAZIDE [Concomitant]
  52. VENTOLIN [Concomitant]
  53. ECOVENT [Concomitant]
  54. SOLCOSERYL [Concomitant]
  55. AMLOPIN [Concomitant]
  56. AMINOPHYLLIN [Concomitant]
  57. NITRODERM [Concomitant]
  58. COVERSUM [Concomitant]
  59. MARCUMAR [Concomitant]
  60. SPIRICORT [Concomitant]
  61. IBUPROFEN [Concomitant]
  62. BUDESONIDE [Concomitant]
  63. AXOTIDE [Concomitant]
  64. PONSTAN [Concomitant]
  65. PIROXICAM [Concomitant]
  66. HALDOL [Concomitant]

REACTIONS (17)
  - ANGINA PECTORIS [None]
  - APHTHOUS STOMATITIS [None]
  - ARRHYTHMIA [None]
  - BALANITIS [None]
  - DIARRHOEA [None]
  - DRUG INTOLERANCE [None]
  - ECZEMA [None]
  - HYPERTENSION [None]
  - MUSCLE SPASMS [None]
  - OROPHARYNGEAL PAIN [None]
  - PAIN [None]
  - PALPITATIONS [None]
  - POLYARTHRITIS [None]
  - PRURITUS [None]
  - RASH [None]
  - TACHYCARDIA [None]
  - VOMITING [None]
